FAERS Safety Report 5451687-6 (Version None)
Quarter: 2007Q3

REPORT INFORMATION
  Report Type: 
  Country: None (occurrence: None)
  Receive Date: 20070913
  Receipt Date: 20070903
  Transmission Date: 20080115
  Serious: Yes (Other)
  Sender: FDA-Public Use
  Company Number: FR-PFIZER INC-2007055305

PATIENT
  Sex: Male
  Weight: 66 kg

DRUGS (9)
  1. CHAMPIX [Suspect]
     Indication: SMOKING CESSATION THERAPY
     Route: 048
     Dates: start: 20070530, end: 20070626
  2. PIMOZIDE [Concomitant]
  3. DIAZEPAM [Concomitant]
  4. ZOLPIDEM TARTRATE [Concomitant]
  5. SERTRALINE [Concomitant]
  6. ALIMEMAZINE TARTRATE [Concomitant]
  7. AMITRIPTYLINE HCL [Concomitant]
  8. MAGNE-B6 [Concomitant]
     Route: 048
  9. AZINC [Concomitant]
     Route: 048

REACTIONS (3)
  - DEPRESSION [None]
  - INTENTIONAL DRUG MISUSE [None]
  - PANIC REACTION [None]
